FAERS Safety Report 20531761 (Version 1)
Quarter: 2022Q1

REPORT INFORMATION
  Report Type: Spontaneous
  Country: CN (occurrence: None)
  Receive Date: 20220301
  Receipt Date: 20220301
  Transmission Date: 20220423
  Serious: Yes (Other)
  Sender: FDA-Public Use
  Company Number: 2022A069016

PATIENT
  Age: 20757 Day
  Sex: Male
  Weight: 81 kg

DRUGS (5)
  1. BRILINTA [Suspect]
     Active Substance: TICAGRELOR
     Indication: Anticoagulation drug level therapeutic
     Route: 048
     Dates: start: 20190601, end: 20190606
  2. ASPIRIN [Suspect]
     Active Substance: ASPIRIN
     Indication: Antiplatelet therapy
     Route: 048
     Dates: start: 20190601, end: 20190606
  3. ENOXAPARIN SODIUM [Suspect]
     Active Substance: ENOXAPARIN SODIUM
     Indication: Anticoagulation drug level therapeutic
     Dosage: 6000.000000 IU, TWICE EVERY ONE DAY
     Route: 058
     Dates: start: 20190601, end: 20190601
  4. TRIMETAZIDINE DIHYDROCHLORIDE [Suspect]
     Active Substance: TRIMETAZIDINE DIHYDROCHLORIDE
     Indication: Myocardial infarction
     Route: 048
     Dates: start: 20190601, end: 20190606
  5. MARZULENE [Concomitant]
     Indication: Abdominal discomfort
     Route: 048
     Dates: start: 20190601, end: 20190606

REACTIONS (3)
  - Skin ulcer [Recovering/Resolving]
  - Pruritus [Recovering/Resolving]
  - Rash erythematous [Recovering/Resolving]

NARRATIVE: CASE EVENT DATE: 20190603
